FAERS Safety Report 24103860 (Version 3)
Quarter: 2024Q3

REPORT INFORMATION
  Report Type: Report from Study
  Country: KR (occurrence: KR)
  Receive Date: 20240717
  Receipt Date: 20240814
  Transmission Date: 20241017
  Serious: Yes (Death, Other)
  Sender: NOVARTIS
  Company Number: KR-002147023-NVSC2023KR079776

PATIENT
  Age: 73 Year
  Sex: Female
  Weight: 50.3 kg

DRUGS (14)
  1. KISQALI [Suspect]
     Active Substance: RIBOCICLIB
     Indication: Hormone receptor positive HER2 negative breast cancer
     Dosage: 600 MG, QD
     Route: 048
     Dates: start: 20230206, end: 20230226
  2. KISQALI [Suspect]
     Active Substance: RIBOCICLIB
     Dosage: 600 MG, QD
     Route: 048
     Dates: start: 20230313, end: 20230326
  3. KISQALI [Suspect]
     Active Substance: RIBOCICLIB
     Dosage: 400 MG, QD
     Route: 048
     Dates: start: 20230327, end: 20230416
  4. KISQALI [Suspect]
     Active Substance: RIBOCICLIB
     Dosage: 400 MG, QD
     Route: 048
     Dates: start: 20230425, end: 20230515
  5. KISQALI [Suspect]
     Active Substance: RIBOCICLIB
     Dosage: 400 MG, QD
     Route: 048
     Dates: start: 20230523, end: 20230612
  6. KISQALI [Suspect]
     Active Substance: RIBOCICLIB
     Dosage: 400 MG, QD
     Route: 048
     Dates: start: 20230620, end: 20230710
  7. FEMARA [Concomitant]
     Active Substance: LETROZOLE
     Indication: Hormone therapy
     Dosage: 2.5 MG, QD
     Route: 048
     Dates: start: 20230206
  8. CALCIUM CARBONATE\CHOLECALCIFEROL [Concomitant]
     Active Substance: CALCIUM CARBONATE\CHOLECALCIFEROL
     Indication: Prophylaxis
     Dosage: 1 DOSAGE FORM, QD
     Route: 048
     Dates: start: 20230206
  9. BANAN [Concomitant]
     Active Substance: CEFPODOXIME PROXETIL
     Indication: Empyema
     Dosage: 400 MG, QD
     Route: 048
     Dates: start: 20230201, end: 20230207
  10. COUGH NOS [Concomitant]
     Active Substance: UNSPECIFIED INGREDIENT
     Indication: Empyema
     Dosage: 6 DOSAGE FORM, QD
     Route: 048
     Dates: start: 20230201, end: 20230217
  11. GANAKHAN [Concomitant]
     Indication: Prophylaxis
     Dosage: 150 MG, QD
     Route: 048
     Dates: start: 20230201, end: 20230217
  12. MEGACE F [Concomitant]
     Indication: Prophylaxis
     Dosage: 5 ML, QD (FORMULATION: SUSPENSION)
     Route: 048
     Dates: start: 20230131
  13. X PAIN [Concomitant]
     Indication: Empyema
     Dosage: 3 DOSAGE FORM, QD
     Route: 048
     Dates: start: 20230112, end: 20230217
  14. PENIRAMIN [Concomitant]
     Indication: Prophylaxis
     Dosage: 4 MG, QD
     Route: 042
     Dates: start: 20230307, end: 20230307

REACTIONS (4)
  - Cardiac arrest [Fatal]
  - Cytopenia [Recovered/Resolved]
  - Anaemia [Recovered/Resolved]
  - Haemoptysis [Unknown]

NARRATIVE: CASE EVENT DATE: 20230306
